FAERS Safety Report 4980575-4 (Version None)
Quarter: 2006Q2

REPORT INFORMATION
  Report Type: 
  Country: None (occurrence: None)
  Receive Date: 20060424
  Receipt Date: 20051004
  Transmission Date: 20061013
  Serious: Yes (Hospitalization)
  Sender: FDA-Public Use
  Company Number: US-MERCK-0510USA03512

PATIENT
  Age: 51 Year
  Sex: Male
  Weight: 102 kg

DRUGS (1)
  1. VIOXX [Suspect]
     Indication: BACK PAIN
     Route: 048
     Dates: start: 20000701, end: 20040229

REACTIONS (21)
  - ACUTE MYOCARDIAL INFARCTION [None]
  - ATRIOVENTRICULAR BLOCK FIRST DEGREE [None]
  - CARDIOMEGALY [None]
  - CHEST DISCOMFORT [None]
  - CORONARY ARTERY SURGERY [None]
  - DEPRESSION [None]
  - DIZZINESS [None]
  - DYSPNOEA [None]
  - GRAFT THROMBOSIS [None]
  - HAEMATURIA [None]
  - HOMOCYSTINAEMIA [None]
  - HYPERHIDROSIS [None]
  - INJURY [None]
  - LOSS OF CONSCIOUSNESS [None]
  - LUNG NEOPLASM [None]
  - MYOCARDIAL INFARCTION [None]
  - PLEURAL FIBROSIS [None]
  - RENAL FAILURE [None]
  - SKIN DISORDER [None]
  - THROMBOSIS [None]
  - VENTRICULAR TACHYCARDIA [None]
